FAERS Safety Report 21693471 (Version 2)
Quarter: 2023Q1

REPORT INFORMATION
  Report Type: Spontaneous
  Country: BR (occurrence: None)
  Receive Date: 20221207
  Receipt Date: 20230104
  Transmission Date: 20230418
  Serious: Yes (Other)
  Sender: FDA-Public Use
  Company Number: BR-ROCHE-3233645

PATIENT
  Age: 54 Year
  Sex: Female
  Weight: 92 kg

DRUGS (2)
  1. AVASTIN [Suspect]
     Active Substance: BEVACIZUMAB
     Indication: Ovarian neoplasm
     Route: 042
     Dates: start: 20201009
  2. DIPHENHYDRAMINE [Concomitant]
     Active Substance: DIPHENHYDRAMINE
     Route: 042

REACTIONS (2)
  - Proteinuria [Not Recovered/Not Resolved]
  - Vascular access site erythema [Not Recovered/Not Resolved]

NARRATIVE: CASE EVENT DATE: 20220901
